FAERS Safety Report 9914038 (Version 1)
Quarter: 2014Q1

REPORT INFORMATION
  Report Type: Spontaneous
  Country: FR (occurrence: FR)
  Receive Date: 20140220
  Receipt Date: 20140220
  Transmission Date: 20141002
  Serious: Yes (Hospitalization)
  Sender: FDA-Public Use
  Company Number: FR-GLAXOSMITHKLINE-B0968938A

PATIENT
  Age: 19 Year
  Sex: Male

DRUGS (22)
  1. ZOVIRAX [Suspect]
     Indication: PRODUCT USED FOR UNKNOWN INDICATION
     Dosage: 10MGK THREE TIMES PER DAY
     Route: 042
     Dates: start: 20130918, end: 20131006
  2. CYMEVAN [Suspect]
     Indication: PRODUCT USED FOR UNKNOWN INDICATION
     Dosage: 6MGK PER DAY
     Route: 042
     Dates: start: 20130917, end: 20131006
  3. MYCAMINE [Suspect]
     Indication: PRODUCT USED FOR UNKNOWN INDICATION
     Dosage: 50MG PER DAY
     Route: 065
     Dates: start: 20130918, end: 20131006
  4. FORTUM [Concomitant]
     Dosage: 2G THREE TIMES PER DAY
  5. INNOHEP [Concomitant]
     Dosage: .9ML PER DAY
  6. INEXIUM [Concomitant]
     Dosage: 20MG PER DAY
  7. DESFERAL [Concomitant]
     Indication: IRON OVERLOAD
     Dosage: 5.5G PER DAY
  8. TARGOCID [Concomitant]
     Dosage: 400MG PER DAY
  9. SPIRAMYCINE [Concomitant]
     Dosage: 1.5IU6 THREE TIMES PER DAY
  10. BACTRIM [Concomitant]
     Dosage: 800MG THREE TIMES PER WEEK
  11. ORACILLINE [Concomitant]
     Dosage: 1IU6 PER DAY
  12. FUNGIZONE [Concomitant]
     Dosage: 15ML FOUR TIMES PER DAY
  13. PYRIDOXINE [Concomitant]
     Dosage: 250MG THREE TIMES PER DAY
  14. VITAMIN PP [Concomitant]
     Dosage: 100MG PER DAY
  15. BENERVA [Concomitant]
     Dosage: 500MG THREE TIMES PER DAY
  16. PHOCYTAN [Concomitant]
     Dosage: 45ML THREE TIMES PER DAY
  17. KREDEX [Concomitant]
     Indication: CARDIAC FAILURE
     Dosage: 6.25MG TWICE PER DAY
  18. URSOLVAN [Concomitant]
     Dosage: 1000MG PER DAY
  19. UVESTEROL [Concomitant]
  20. CICLOSPORIN [Concomitant]
     Dosage: 37MG TWICE PER DAY
  21. LAROXYL [Concomitant]
     Dosage: 45MG PER DAY
  22. CALCIUM [Concomitant]
     Dosage: 500MG THREE TIMES PER DAY

REACTIONS (4)
  - Hepatic encephalopathy [Recovered/Resolved]
  - Hepatocellular injury [Recovered/Resolved]
  - Lactic acidosis [Recovered/Resolved]
  - Drug level increased [Unknown]
